FAERS Safety Report 8078344-4 (Version None)
Quarter: 2012Q1

REPORT INFORMATION
  Report Type: 
  Country: None (occurrence: None)
  Receive Date: 20120123
  Receipt Date: 20120113
  Transmission Date: 20120608
  Serious: Yes (Hospitalization)
  Sender: FDA-Public Use
  Company Number: 1000027122

PATIENT
  Age: 90 Year
  Sex: Male

DRUGS (2)
  1. DALIRESP [Suspect]
     Indication: CHRONIC OBSTRUCTIVE PULMONARY DISEASE
     Dosage: 500 MCG (500 MCG,1 IN 1 D),ORAL
     Route: 048
     Dates: start: 20111101, end: 20120101
  2. DIURIL (CHLOROTHIAZIDE) (CHLOROTHIAZIDE) [Concomitant]

REACTIONS (5)
  - MALAISE [None]
  - HEAD INJURY [None]
  - BLOOD PRESSURE FLUCTUATION [None]
  - SYNCOPE [None]
  - BLOOD PRESSURE ORTHOSTATIC INCREASED [None]
